FAERS Safety Report 16647539 (Version 15)
Quarter: 2020Q2

REPORT INFORMATION
  Report Type: Spontaneous
  Country: US (occurrence: US)
  Receive Date: 20190730
  Receipt Date: 20200611
  Transmission Date: 20200713
  Serious: No
  Sender: FDA-Public Use
  Company Number: US-PFIZER INC-2019323888

PATIENT
  Age: 53 Year
  Sex: Female
  Weight: 90 kg

DRUGS (7)
  1. PRISTIQ EXTENDED-RELEASE [Suspect]
     Active Substance: DESVENLAFAXINE SUCCINATE
     Indication: MAJOR DEPRESSION
     Dosage: UNK
  2. PRISTIQ EXTENDED-RELEASE [Suspect]
     Active Substance: DESVENLAFAXINE SUCCINATE
     Indication: MENOPAUSE
     Dosage: 50 MG
  3. PRISTIQ EXTENDED-RELEASE [Suspect]
     Active Substance: DESVENLAFAXINE SUCCINATE
     Dosage: 200 MG, DAILY
  4. PRISTIQ EXTENDED-RELEASE [Suspect]
     Active Substance: DESVENLAFAXINE SUCCINATE
     Indication: DEPRESSION
     Dosage: 100 MG
  5. PRISTIQ EXTENDED-RELEASE [Suspect]
     Active Substance: DESVENLAFAXINE SUCCINATE
     Dosage: 100 MG, 2X/DAY
     Route: 048
  6. PRISTIQ EXTENDED-RELEASE [Suspect]
     Active Substance: DESVENLAFAXINE SUCCINATE
     Dosage: 200 MG (2 50 MG AND A 100MG)
  7. PRISTIQ EXTENDED-RELEASE [Suspect]
     Active Substance: DESVENLAFAXINE SUCCINATE
     Dosage: 150 MG, DAILY (ONE 50MG TABLET AND ONE 100MG TABLET)

REACTIONS (7)
  - Withdrawal syndrome [Unknown]
  - Head injury [Unknown]
  - Product use in unapproved indication [Unknown]
  - Nervousness [Unknown]
  - Intentional product misuse [Unknown]
  - Off label use [Unknown]
  - Drug effective for unapproved indication [Unknown]
